FAERS Safety Report 7824051-X (Version None)
Quarter: 2011Q4

REPORT INFORMATION
  Report Type: 
  Country: None (occurrence: None)
  Receive Date: 20111019
  Receipt Date: 20111013
  Transmission Date: 20120403
  Serious: Yes (Other)
  Sender: FDA-Public Use
  Company Number: US-TEVA-305277USA

PATIENT
  Sex: Male

DRUGS (1)
  1. AMPHETAMINE AND DEXTROAMPHETAMINE SALTS [Suspect]

REACTIONS (10)
  - HOMICIDAL IDEATION [None]
  - SUICIDAL IDEATION [None]
  - BLOOD PRESSURE SYSTOLIC INCREASED [None]
  - ANXIETY [None]
  - SELF-INJURIOUS IDEATION [None]
  - CONFUSIONAL STATE [None]
  - BLOOD TESTOSTERONE INCREASED [None]
  - DRUG INTERACTION [None]
  - AGGRESSION [None]
  - DELUSION [None]
